FAERS Safety Report 25673966 (Version 1)
Quarter: 2025Q3

REPORT INFORMATION
  Report Type: Other
  Country: US (occurrence: US)
  Receive Date: 20250813
  Receipt Date: 20250813
  Transmission Date: 20251020
  Serious: Yes (Hospitalization, Other)
  Sender: APPCO PHARMA LLC
  Company Number: US-Appco Pharma LLC-2182387

PATIENT

DRUGS (4)
  1. VENLAFAXINE [Suspect]
     Active Substance: VENLAFAXINE HYDROCHLORIDE
     Indication: Product used for unknown indication
  2. HYDROXYZINE [Suspect]
     Active Substance: HYDROXYZINE HYDROCHLORIDE
  3. PREDNISONE [Suspect]
     Active Substance: PREDNISONE
  4. IBUPROFEN [Suspect]
     Active Substance: IBUPROFEN

REACTIONS (3)
  - Intentional overdose [Unknown]
  - Toxicity to various agents [Recovered/Resolved]
  - Anticholinergic syndrome [Recovered/Resolved]
